FAERS Safety Report 7933372-1 (Version None)
Quarter: 2011Q4

REPORT INFORMATION
  Report Type: 
  Country: None (occurrence: None)
  Receive Date: 20111118
  Receipt Date: 20111114
  Transmission Date: 20120403
  Serious: Yes (Hospitalization, Other)
  Sender: FDA-Public Use
  Company Number: 2011SP025636

PATIENT
  Age: 32 Year
  Sex: Female
  Weight: 83.9154 kg

DRUGS (1)
  1. NUVARING [Suspect]
     Indication: ENDOMETRIOSIS
     Dates: start: 20090107, end: 20090601

REACTIONS (40)
  - DRUG HYPERSENSITIVITY [None]
  - FATIGUE [None]
  - URETERAL DISORDER [None]
  - NEPHROLITHIASIS [None]
  - ANGER [None]
  - TOBACCO ABUSE [None]
  - NAUSEA [None]
  - DEEP VEIN THROMBOSIS [None]
  - PAIN [None]
  - ABDOMINAL PAIN LOWER [None]
  - DEPRESSION [None]
  - NO THERAPEUTIC RESPONSE [None]
  - ARTHROPOD BITE [None]
  - DYSURIA [None]
  - UPPER RESPIRATORY TRACT INFECTION [None]
  - FEELING ABNORMAL [None]
  - LIMB DEFORMITY [None]
  - CONSTIPATION [None]
  - RENAL DISORDER [None]
  - POLLAKIURIA [None]
  - IRRITABILITY [None]
  - GALLBLADDER DISORDER [None]
  - RENAL CYST [None]
  - WEIGHT INCREASED [None]
  - MENORRHAGIA [None]
  - ABSCESS [None]
  - PRODUCTIVE COUGH [None]
  - LIBIDO DECREASED [None]
  - DRUG WITHDRAWAL SYNDROME [None]
  - SINUSITIS [None]
  - HAEMORRHOIDS [None]
  - CHOLECYSTITIS CHRONIC [None]
  - DIARRHOEA [None]
  - JOINT SWELLING [None]
  - INFUSION SITE EXTRAVASATION [None]
  - STAPHYLOCOCCAL INFECTION [None]
  - SPUTUM DISCOLOURED [None]
  - OVARIAN CYST [None]
  - POLYMENORRHOEA [None]
  - IRRITABLE BOWEL SYNDROME [None]
